FAERS Safety Report 22059148 (Version 1)
Quarter: 2023Q1

REPORT INFORMATION
  Report Type: Spontaneous
  Country: BR (occurrence: BR)
  Receive Date: 20230303
  Receipt Date: 20230303
  Transmission Date: 20230418
  Serious: Yes (Other)
  Sender: FDA-Public Use
  Company Number: BR-BAYER-2023A027148

PATIENT
  Age: 37 Year
  Sex: Female
  Weight: 80 kg

DRUGS (1)
  1. GADOBUTROL [Suspect]
     Active Substance: GADOBUTROL
     Indication: Magnetic resonance imaging abdominal
     Dosage: 7 ML, ONCE
     Route: 042
     Dates: start: 20230218, end: 20230218

REACTIONS (4)
  - Throat irritation [Recovered/Resolved]
  - Dysphonia [Recovered/Resolved]
  - Erythema [Recovered/Resolved]
  - Nausea [Recovered/Resolved]

NARRATIVE: CASE EVENT DATE: 20230218
